FAERS Safety Report 26198386 (Version 1)
Quarter: 2025Q4

REPORT INFORMATION
  Report Type: Spontaneous
  Country: US (occurrence: US)
  Receive Date: 20251224
  Receipt Date: 20251224
  Transmission Date: 20260117
  Serious: Yes (Other)
  Sender: PFIZER
  Company Number: US-BRISTOL-MYERS SQUIBB COMPANY-2025-171966

PATIENT
  Age: 73 Year
  Sex: Male
  Weight: 125 kg

DRUGS (2)
  1. ELIQUIS [Suspect]
     Active Substance: APIXABAN
     Indication: Coronary artery disease
  2. VYNDAMAX [Suspect]
     Active Substance: TAFAMIDIS
     Dosage: QUANTITY #30 CAPSULES (30 DAYS)REFILLS: 11
     Route: 048
     Dates: end: 20251204

REACTIONS (2)
  - Chronic left ventricular failure [Unknown]
  - Off label use [Unknown]
